FAERS Safety Report 8655526 (Version 5)
Quarter: 2013Q2

REPORT INFORMATION
  Report Type: Spontaneous
  Country: US (occurrence: US)
  Receive Date: 20120709
  Receipt Date: 20130531
  Transmission Date: 20140414
  Serious: Yes (Hospitalization)
  Sender: FDA-Public Use
  Company Number: US-ELI_LILLY_AND_COMPANY-US201206009550

PATIENT
  Age: 76 Year
  Sex: Female

DRUGS (16)
  1. FORTEO [Suspect]
     Indication: OSTEOPOROSIS
     Dosage: 20 UG, QD
     Route: 058
     Dates: start: 20111205
  2. FORTEO [Suspect]
     Dosage: 20 UG, QD
     Route: 058
  3. FORTEO [Suspect]
     Dosage: 20 UG, QD
     Route: 058
  4. FORTEO [Suspect]
     Dosage: 20 UG, QD
     Route: 058
  5. COUMADIN [Concomitant]
     Dosage: 5 MG, QD
  6. TORSEMIDE [Concomitant]
     Dosage: 80 MG, QD
  7. DILTIAZEM [Concomitant]
     Dosage: 300 MG, QD
  8. ZETIA [Concomitant]
     Dosage: 10 MG, QD
  9. MICARDIS [Concomitant]
     Dosage: 80 MG, QD
  10. URSODIOL [Concomitant]
     Dosage: 300 MG, QD
  11. ERGOCALCIFEROL [Concomitant]
     Dosage: 50000 IU, WEEKLY (1/W)
  12. BRIMONIDINE [Concomitant]
     Dosage: 1 DF, BID
     Route: 047
  13. TRAVATAN Z [Concomitant]
     Dosage: 1 DF, EACH EVENING
     Route: 047
  14. FLAXSEED OIL [Concomitant]
     Dosage: 1 DF, QD
  15. VITAMIIN C [Concomitant]
     Dosage: 1 DF, QD
  16. VITAMIN D [Concomitant]
     Dosage: 1 DF, QD

REACTIONS (14)
  - Local swelling [Unknown]
  - Pain [Unknown]
  - Drug hypersensitivity [Recovered/Resolved]
  - Fall [Unknown]
  - Fluid retention [Unknown]
  - Medication error [Unknown]
  - Stress fracture [Recovered/Resolved]
  - Bone pain [Unknown]
  - Arthralgia [Unknown]
  - Pain in extremity [Unknown]
  - Arthralgia [Unknown]
  - Contusion [Unknown]
  - Pain [Recovered/Resolved]
  - Mobility decreased [Recovered/Resolved]
